FAERS Safety Report 6285441-2 (Version None)
Quarter: 2009Q3

REPORT INFORMATION
  Report Type: 
  Country: None (occurrence: None)
  Receive Date: 20090727
  Receipt Date: 20090717
  Transmission Date: 20100115
  Serious: Yes (Other)
  Sender: FDA-Public Use
  Company Number: AU-ABBOTT-09P-008-0585839-00

PATIENT
  Sex: Male

DRUGS (1)
  1. LUCRIN DEPOT INJECTION [Suspect]
     Indication: DRUG USE FOR UNKNOWN INDICATION

REACTIONS (13)
  - BURNING SENSATION [None]
  - DYSURIA [None]
  - EMOTIONAL DISTRESS [None]
  - EYE PAIN [None]
  - EYELID DISORDER [None]
  - GAIT DISTURBANCE [None]
  - HAEMATOCHEZIA [None]
  - HEADACHE [None]
  - IMPAIRED DRIVING ABILITY [None]
  - INJECTION SITE PAIN [None]
  - INSOMNIA [None]
  - SCROTAL PAIN [None]
  - VISUAL IMPAIRMENT [None]
